FAERS Safety Report 5154513-8 (Version None)
Quarter: 2006Q4

REPORT INFORMATION
  Report Type: 
  Country: None (occurrence: None)
  Receive Date: 20061114
  Receipt Date: 20061101
  Transmission Date: 20070319
  Serious: Yes (Other)
  Sender: FDA-Public Use
  Company Number: 2006125414

PATIENT
  Age: 76 Year
  Sex: Female

DRUGS (6)
  1. CARDURA XL [Suspect]
     Indication: HYPERTENSION
     Dosage: 4 MG (4 MG, FREQUENCY:  DAILY INTERVAL:  EVERY DAY)
  2. CLINDAMYCIN PHOSPHATE SOLUTION [Suspect]
     Indication: INFECTION
     Dosage: 2400 MG (600 MG, FREQUENCY:  QID INTERVAL:  EVERY DAY), INTRAVENOUS
     Route: 042
  3. CLINDAMYCIN HYDROCHLORIDE [Suspect]
     Indication: INFECTION
     Dosage: 1800 MG (450 MG, FREQUENCY:  QID INTERVAL:  EVERY DAY), ORAL
     Route: 048
  4. FUCIDINE CAP [Suspect]
     Indication: INFECTION
     Dosage: 1500 MG (500 MG, 3 IN 1 D), ORAL
     Route: 048
  5. ATARAX [Concomitant]
  6. DRUG (DRUG) [Concomitant]

REACTIONS (2)
  - INTERVERTEBRAL DISCITIS [None]
  - JAUNDICE [None]
